FAERS Safety Report 8604827-1 (Version None)
Quarter: 2012Q3

REPORT INFORMATION
  Report Type: 
  Country: None (occurrence: None)
  Receive Date: 20120820
  Receipt Date: 20120814
  Transmission Date: 20120928
  Serious: Yes (Death)
  Sender: FDA-Public Use
  Company Number: US-JNJFOC-20120807774

PATIENT
  Sex: Male
  Weight: 102.06 kg

DRUGS (3)
  1. STELARA [Suspect]
     Indication: PSORIASIS
     Route: 058
     Dates: start: 20120618, end: 20120618
  2. STELARA [Suspect]
     Route: 058
     Dates: start: 20120301, end: 20120301
  3. STELARA [Suspect]
     Route: 058
     Dates: start: 20120209, end: 20120209

REACTIONS (1)
  - DEATH [None]
